FAERS Safety Report 10497929 (Version 1)
Quarter: 2014Q4

REPORT INFORMATION
  Report Type: Spontaneous
  Country: US (occurrence: None)
  Receive Date: 20141003
  Receipt Date: 20141003
  Transmission Date: 20150528
  Serious: Yes (Life-Threatening, Hospitalization)
  Sender: FDA-Public Use
  Company Number: None

PATIENT
  Age: 69 Year
  Sex: Male
  Weight: 73.4 kg

DRUGS (1)
  1. NAPROXEN. [Suspect]
     Active Substance: NAPROXEN
     Dosage: 2 TAB ONCE PO
     Route: 048
     Dates: start: 20140914, end: 20140914

REACTIONS (10)
  - Anaphylactic reaction [None]
  - Urticaria [None]
  - Hyperhidrosis [None]
  - Eyelid oedema [None]
  - Anxiety [None]
  - Angioedema [None]
  - Rash [None]
  - Pruritus [None]
  - Hypotension [None]
  - Palatal oedema [None]

NARRATIVE: CASE EVENT DATE: 20140914
